FAERS Safety Report 9853173 (Version 2)
Quarter: 2014Q1

REPORT INFORMATION
  Report Type: Spontaneous
  Country: US (occurrence: US)
  Receive Date: 20140129
  Receipt Date: 20140224
  Transmission Date: 20141002
  Serious: Yes (Other)
  Sender: FDA-Public Use
  Company Number: US-PFIZER INC-2014025116

PATIENT
  Sex: Male

DRUGS (2)
  1. NITROSTAT [Suspect]
     Dosage: UNK
  2. ISOSORBIDE [Suspect]
     Dosage: 50 MG, UNK

REACTIONS (2)
  - Myocardial infarction [Unknown]
  - Angina pectoris [Unknown]
